FAERS Safety Report 23643598 (Version 1)
Quarter: 2024Q1

REPORT INFORMATION
  Report Type: Spontaneous
  Country: US (occurrence: None)
  Receive Date: 20240316
  Receipt Date: 20240316
  Transmission Date: 20240410
  Serious: Yes (Hospitalization, Disabling)
  Sender: FDA-Public Use
  Company Number: None

PATIENT
  Age: 65 Year
  Sex: Female
  Weight: 58.5 kg

DRUGS (8)
  1. KENALOG [Suspect]
     Active Substance: TRIAMCINOLONE ACETONIDE
  2. DEXAMETHASONE [Suspect]
     Active Substance: DEXAMETHASONE
  3. TRAZODONE [Concomitant]
     Active Substance: TRAZODONE HYDROCHLORIDE
  4. PROPRANOLOL [Concomitant]
     Active Substance: PROPRANOLOL HYDROCHLORIDE
  5. MELATONIN [Concomitant]
     Active Substance: MELATONIN
  6. Children^s Benadryl [Concomitant]
  7. MAGNESIUM [Concomitant]
     Active Substance: MAGNESIUM
  8. PROBIOTICS NOS [Concomitant]
     Active Substance: PROBIOTICS NOS

REACTIONS (14)
  - Hypoaesthesia [None]
  - Anxiety [None]
  - Postmenopausal haemorrhage [None]
  - Tremor [None]
  - Nausea [None]
  - Decreased appetite [None]
  - Photosensitivity reaction [None]
  - Hyperacusis [None]
  - Insomnia [None]
  - Panic attack [None]
  - Vision blurred [None]
  - Depersonalisation/derealisation disorder [None]
  - Substance-induced psychotic disorder [None]
  - Temperature intolerance [None]

NARRATIVE: CASE EVENT DATE: 20220518
